FAERS Safety Report 10363695 (Version 1)
Quarter: 2014Q3

REPORT INFORMATION
  Report Type: Spontaneous
  Country: CN (occurrence: CN)
  Receive Date: 20140805
  Receipt Date: 20140805
  Transmission Date: 20150326
  Serious: Yes (Hospitalization, Other)
  Sender: FDA-Public Use
  Company Number: CN-ELI_LILLY_AND_COMPANY-CN201407002969

PATIENT
  Age: 62 Year
  Sex: Male

DRUGS (2)
  1. HUMULIN 70/30 [Suspect]
     Active Substance: INSULIN HUMAN
     Indication: DIABETES MELLITUS
  2. NIFEDIPINE. [Concomitant]
     Active Substance: NIFEDIPINE
     Route: 058

REACTIONS (4)
  - Drug hypersensitivity [Recovered/Resolved]
  - Deafness [Unknown]
  - Palpitations [Unknown]
  - Angina pectoris [Unknown]

NARRATIVE: CASE EVENT DATE: 20140706
